FAERS Safety Report 7866353-7 (Version None)
Quarter: 2011Q4

REPORT INFORMATION
  Report Type: 
  Country: None (occurrence: None)
  Receive Date: 20111028
  Receipt Date: 20110603
  Transmission Date: 20120403
  Serious: No
  Sender: FDA-Public Use
  Company Number: US-GLAXOSMITHKLINE-A0930169A

PATIENT
  Age: 62 Year
  Sex: Female

DRUGS (3)
  1. ADVAIR DISKUS 100/50 [Suspect]
     Indication: ASTHMA
     Dosage: 1PUFF TWICE PER DAY
     Route: 055
     Dates: start: 20090501
  2. CLONIDINE [Concomitant]
  3. SYNTHROID [Concomitant]

REACTIONS (3)
  - GLOSSODYNIA [None]
  - ORAL FUNGAL INFECTION [None]
  - DRUG INEFFECTIVE [None]
